FAERS Safety Report 8411732-2 (Version None)
Quarter: 2012Q2

REPORT INFORMATION
  Report Type: 
  Country: None (occurrence: None)
  Receive Date: 20120605
  Receipt Date: 20120530
  Transmission Date: 20120825
  Serious: Yes (Other)
  Sender: FDA-Public Use
  Company Number: JP-PFIZER INC-2012130340

PATIENT
  Age: 76 Year
  Sex: Female

DRUGS (1)
  1. SUTENT [Suspect]
     Indication: INSULINOMA
     Dosage: 12.5 MG/DAY

REACTIONS (2)
  - BONE MARROW FAILURE [None]
  - HAEMORRHAGIC DIATHESIS [None]
